FAERS Safety Report 19256711 (Version 1)
Quarter: 2021Q2

REPORT INFORMATION
  Report Type: Report from Study
  Country: US (occurrence: US)
  Receive Date: 20210514
  Receipt Date: 20210514
  Transmission Date: 20210717
  Serious: Yes (Hospitalization, Other)
  Sender: FDA-Public Use
  Company Number: US-UCBSA-2020006782

PATIENT
  Age: 0 Year
  Sex: Female
  Weight: 3.96 kg

DRUGS (14)
  1. DHA [Concomitant]
     Active Substance: DIETARY SUPPLEMENT
     Indication: PRODUCT USED FOR UNKNOWN INDICATION
     Dosage: 1 PILL, ONCE DAILY (QD)
     Route: 064
     Dates: start: 20180115, end: 20180817
  2. PRENATAL VITAMINS [ASCORBIC ACID;BETACAROTENE;CALCIUM SULFATE;COLECALC [Concomitant]
     Active Substance: MINERALS\VITAMINS
     Dosage: 1PILL, ONCE DAILY (QD)
     Route: 064
     Dates: start: 20180501, end: 20190817
  3. QUETIAPINE. [Concomitant]
     Active Substance: QUETIAPINE
     Indication: BIPOLAR DISORDER
     Dosage: 200 MILLIGRAM, ONCE DAILY (QD)
     Route: 064
     Dates: start: 20171116, end: 20180817
  4. VITAMIN D [COLECALCIFEROL] [Concomitant]
     Active Substance: CHOLECALCIFEROL
     Indication: PRODUCT USED FOR UNKNOWN INDICATION
     Dosage: 1000 INTERNATIONAL UNIT, ONCE DAILY (QD)
     Route: 064
     Dates: start: 20171116, end: 20180817
  5. FOLIC ACID. [Concomitant]
     Active Substance: FOLIC ACID
     Indication: PRODUCT USED FOR UNKNOWN INDICATION
     Dosage: 2 MILLIGRAM, ONCE DAILY (QD)
     Route: 064
     Dates: start: 20180115, end: 20180601
  6. PRENATAL VITAMINS [ASCORBIC ACID;BETACAROTENE;CALCIUM SULFATE;COLECALC [Concomitant]
     Active Substance: MINERALS\VITAMINS
     Indication: PRODUCT USED FOR UNKNOWN INDICATION
     Dosage: 1PILL ONCE DAILY (QD)
     Route: 064
     Dates: start: 20180115, end: 20180430
  7. CERTOLIZUMAB PEGOL RA [Suspect]
     Active Substance: CERTOLIZUMAB PEGOL
     Indication: ANKYLOSING SPONDYLITIS
     Dosage: 200 MILLIGRAM, EV 2 WEEKS(QOW)
     Route: 064
     Dates: start: 20171116, end: 20180515
  8. VITAMIN B12 [Concomitant]
     Active Substance: CYANOCOBALAMIN
     Indication: PRODUCT USED FOR UNKNOWN INDICATION
     Dosage: 1 PILL, ONCE DAILY (QD)
     Route: 064
     Dates: start: 20171116, end: 20180817
  9. MINERVA [Suspect]
     Active Substance: CYPROTERONE ACETATE\ETHINYL ESTRADIOL
     Indication: ORAL CONTRACEPTION
     Dosage: 1 DOSAGE FORM, ONCE DAILY (QD)
     Route: 064
     Dates: start: 20171102, end: 20180115
  10. IBUPROFEN. [Concomitant]
     Active Substance: IBUPROFEN
     Indication: MUSCLE SPASMS
     Dosage: 2 PILLS QD
     Route: 064
     Dates: start: 20171226, end: 20171226
  11. OMEGA?3 FATTY ACIDS [Concomitant]
     Active Substance: OMEGA-3 FATTY ACIDS
     Indication: PRODUCT USED FOR UNKNOWN INDICATION
     Dosage: 900 MILLIGRAM, ONCE DAILY (QD)
     Route: 064
     Dates: start: 20180215, end: 20180817
  12. RABEPRAZOLE SODIUM. [Concomitant]
     Active Substance: RABEPRAZOLE SODIUM
     Indication: DYSPEPSIA
     Dosage: 20 MILLIGRAM, ONCE DAILY (QD)
     Route: 048
     Dates: start: 20171116, end: 20180817
  13. SYMBICORT [Concomitant]
     Active Substance: BUDESONIDE\FORMOTEROL FUMARATE DIHYDRATE
     Indication: ASTHMA
     Dosage: 2 PUFFS ONCE DAILY (QD)
     Route: 064
     Dates: start: 20171116, end: 20180817
  14. VENTOLINE [SALBUTAMOL] [Concomitant]
     Active Substance: ALBUTEROL SULFATE
     Indication: ASTHMA
     Dosage: 2 PUFF, EV 3 WEEKS
     Route: 064
     Dates: start: 20171116, end: 20180817

REACTIONS (5)
  - Maternal exposure before pregnancy [Unknown]
  - Poor feeding infant [Unknown]
  - Hypersomnia [Unknown]
  - Urine output decreased [Unknown]
  - Speech disorder [Unknown]

NARRATIVE: CASE EVENT DATE: 20171116
